FAERS Safety Report 9663572 (Version 1)
Quarter: 2013Q4

REPORT INFORMATION
  Report Type: Spontaneous
  Country: US (occurrence: US)
  Receive Date: 20131101
  Receipt Date: 20131101
  Transmission Date: 20140711
  Serious: No
  Sender: FDA-Public Use
  Company Number: US-PFIZER INC-2013310037

PATIENT
  Age: 73 Year
  Sex: Female
  Weight: 63.49 kg

DRUGS (4)
  1. ADVIL PM [Suspect]
     Indication: HEADACHE
     Dosage: 200/38 MG (IBUPROFEN 200MG/DIPHENHYDRAMINE CITRATE 38MG), AS NEEDED
  2. TYLENOL [Suspect]
     Dosage: UNK
  3. AMBIEN [Concomitant]
     Indication: INSOMNIA
     Dosage: 12.5 MG, AS NEEDED
  4. ADVIL [Concomitant]
     Indication: HEADACHE
     Dosage: UNK, AS NEEDED

REACTIONS (3)
  - Euphoric mood [Unknown]
  - Stress [Unknown]
  - Drug ineffective [Unknown]
